FAERS Safety Report 13252908 (Version 3)
Quarter: 2017Q3

REPORT INFORMATION
  Report Type: Spontaneous
  Country: US (occurrence: US)
  Receive Date: 20170220
  Receipt Date: 20170814
  Transmission Date: 20171127
  Serious: Yes (Hospitalization)
  Sender: FDA-Public Use
  Company Number: PHEH2017US004624

PATIENT
  Age: 74 Year
  Sex: Female

DRUGS (2)
  1. LETROZOLE. [Suspect]
     Active Substance: LETROZOLE
     Indication: PRODUCT USED FOR UNKNOWN INDICATION
     Dosage: 2.5 MG, UNK
     Route: 065
  2. PALBOCICLIB [Suspect]
     Active Substance: PALBOCICLIB
     Indication: PRODUCT USED FOR UNKNOWN INDICATION
     Dosage: 75 MG, UNK
     Route: 065
     Dates: start: 20151020

REACTIONS (9)
  - Nephrolithiasis [Unknown]
  - Pain [Unknown]
  - Fatigue [Unknown]
  - Cholelithiasis [Unknown]
  - Cough [Unknown]
  - Mouth swelling [Unknown]
  - Urinary tract infection [Unknown]
  - Hot flush [Unknown]
  - Nausea [Unknown]

NARRATIVE: CASE EVENT DATE: 20170718
